FAERS Safety Report 20232705 (Version 1)
Quarter: 2021Q4

REPORT INFORMATION
  Report Type: Other
  Country: US (occurrence: None)
  Receive Date: 20211227
  Receipt Date: 20211227
  Transmission Date: 20220304
  Serious: Yes (Death)
  Sender: FDA-Public Use
  Company Number: US-ROCHE-2986545

PATIENT
  Sex: Male

DRUGS (7)
  1. OCREVUS [Suspect]
     Active Substance: OCRELIZUMAB
     Indication: Multiple sclerosis
     Dosage: DATE OF TREATMENT: 26/JUL/2021,
     Route: 065
  2. KLONOPIN [Concomitant]
     Active Substance: CLONAZEPAM
  3. KEPPRA [Concomitant]
     Active Substance: LEVETIRACETAM
     Route: 048
  4. MELOXICAM [Concomitant]
     Active Substance: MELOXICAM
  5. GABAPENTIN [Concomitant]
     Active Substance: GABAPENTIN
     Route: 048
  6. TAMSULOSIN [Concomitant]
     Active Substance: TAMSULOSIN
  7. HYDROCODONE [Concomitant]
     Active Substance: HYDROCODONE
     Route: 048

REACTIONS (1)
  - Seizure [Fatal]
